FAERS Safety Report 9204006 (Version 2)
Quarter: 2014Q4

REPORT INFORMATION
  Report Type: Spontaneous
  Country: PT (occurrence: PT)
  Receive Date: 20130402
  Receipt Date: 20141022
  Transmission Date: 20150529
  Serious: Yes (Other)
  Sender: FDA-Public Use
  Company Number: PHHY2013PT017214

PATIENT
  Age: 60 Year
  Sex: Female

DRUGS (9)
  1. CO-DIOVAN [Concomitant]
     Active Substance: HYDROCHLOROTHIAZIDE\VALSARTAN
     Dosage: 1 DF, BID  (160/12.5 MG)
     Route: 065
     Dates: start: 201207
  2. CO-DIOVAN [Concomitant]
     Active Substance: HYDROCHLOROTHIAZIDE\VALSARTAN
     Dosage: 80/12.5 MG, UNK
     Route: 065
  3. EXFORGE [Concomitant]
     Active Substance: AMLODIPINE BESYLATE\VALSARTAN
     Indication: PRODUCT USED FOR UNKNOWN INDICATION
     Dosage: 80/5 MG, UNK
     Route: 065
  4. RASILEZ [Suspect]
     Active Substance: ALISKIREN
     Dosage: 300 MG, QD (IN MORNING)
     Route: 065
     Dates: end: 201301
  5. CRESTOR [Concomitant]
     Active Substance: ROSUVASTATIN CALCIUM
     Indication: DYSLIPIDAEMIA
     Dosage: UNK DF, UNK
     Dates: start: 2008
  6. RASILEZ [Suspect]
     Active Substance: ALISKIREN
     Indication: HYPERTENSION
     Dosage: 150 MG, UNK
     Route: 065
     Dates: start: 201112, end: 201201
  7. CO-DIOVAN [Concomitant]
     Active Substance: HYDROCHLOROTHIAZIDE\VALSARTAN
     Indication: HYPERTENSION
     Dosage: 1 DF, BID (160/25 MG)
     Route: 065
     Dates: start: 2007
  8. SIMBICORT TURBUHALER [Concomitant]
     Indication: ASTHMA
     Dosage: UNK DF, AS NEEDED
     Route: 065
     Dates: start: 2003
  9. RASILEZ [Suspect]
     Active Substance: ALISKIREN
     Dosage: 300 MG, QD (AT NIGHT)
     Route: 065
     Dates: start: 201201

REACTIONS (4)
  - Papule [Recovering/Resolving]
  - Lichen planus [Recovering/Resolving]
  - Blood pressure inadequately controlled [Unknown]
  - Rash papular [Recovered/Resolved with Sequelae]

NARRATIVE: CASE EVENT DATE: 2012
